FAERS Safety Report 5465917-8 (Version None)
Quarter: 2007Q3

REPORT INFORMATION
  Report Type: 
  Country: None (occurrence: None)
  Receive Date: 20070924
  Receipt Date: 20070919
  Transmission Date: 20080115
  Serious: Yes (Death, Life-Threatening, Hospitalization)
  Sender: FDA-Public Use
  Company Number: BR-JNJFOC-20070902477

PATIENT
  Sex: Female

DRUGS (8)
  1. TMC125 [Suspect]
     Indication: HIV INFECTION
     Route: 048
  2. TMC114 [Suspect]
     Route: 048
  3. TMC114 [Suspect]
     Indication: HIV INFECTION
     Route: 048
  4. RITONAVIR [Suspect]
     Indication: HIV INFECTION
  5. EPIVIR [Concomitant]
     Indication: HIV INFECTION
     Route: 048
  6. ZERIT [Concomitant]
     Indication: HIV INFECTION
     Route: 048
  7. VIREAD [Concomitant]
     Indication: HIV INFECTION
     Route: 048
  8. PENTAMIDINE ISETHIONATE [Concomitant]
     Indication: ANTIFUNGAL PROPHYLAXIS
     Route: 055

REACTIONS (1)
  - SEPTIC SHOCK [None]
